FAERS Safety Report 7496351-7 (Version None)
Quarter: 2011Q2

REPORT INFORMATION
  Report Type: 
  Country: None (occurrence: None)
  Receive Date: 20110523
  Receipt Date: 20110512
  Transmission Date: 20111010
  Serious: Yes (Hospitalization, Other)
  Sender: FDA-Public Use
  Company Number: TW-ELI_LILLY_AND_COMPANY-TW201102002924

PATIENT
  Age: 55 Year
  Sex: Female

DRUGS (8)
  1. ALIMTA [Suspect]
     Indication: NON-SMALL CELL LUNG CANCER
     Dosage: UNK UNK, OTHER
     Route: 065
     Dates: start: 20100625, end: 20110111
  2. METOPROLOL SUCCINATE [Concomitant]
     Dosage: 100 MG, DAILY (1/D)
  3. NORVASC [Concomitant]
     Dosage: 5 MG, DAILY (1/D)
  4. VITAMIN B-12 [Concomitant]
     Indication: SUPPLEMENTATION THERAPY
     Dosage: UNK
     Route: 065
  5. ULTRACET [Concomitant]
  6. ZOLPIDEM [Concomitant]
  7. FOLIC ACID [Concomitant]
     Indication: SUPPLEMENTATION THERAPY
     Dosage: UNK
     Route: 065
  8. TEMGESIC [Concomitant]
     Dosage: 0.2 G, 2/D

REACTIONS (11)
  - HAEMORRHAGE [None]
  - PERITONEAL DISORDER [None]
  - PLEURAL EFFUSION [None]
  - PERITONEAL HAEMORRHAGE [None]
  - MALIGNANT PLEURAL EFFUSION [None]
  - SOFT TISSUE DISORDER [None]
  - INTESTINAL DILATATION [None]
  - LYMPH NODES SCAN ABNORMAL [None]
  - PERITONITIS [None]
  - ILEUS [None]
  - METASTASES TO PERITONEUM [None]
